FAERS Safety Report 23480867 (Version 2)
Quarter: 2025Q2

REPORT INFORMATION
  Report Type: Spontaneous
  Country: US (occurrence: US)
  Receive Date: 20240205
  Receipt Date: 20250403
  Transmission Date: 20250717
  Serious: No
  Sender: CHIESI
  Company Number: US-AMRYT PHARMACEUTICALS DAC-AEGR006876

PATIENT
  Sex: Female
  Weight: 61.224 kg

DRUGS (16)
  1. MYALEPT [Suspect]
     Active Substance: METRELEPTIN
     Indication: Lipodystrophy acquired
     Dosage: 5 MILLIGRAM (1 ML), QD
     Route: 058
     Dates: start: 20240110
  2. MYALEPT [Suspect]
     Active Substance: METRELEPTIN
  3. MYALEPT [Suspect]
     Active Substance: METRELEPTIN
  4. BUPROPION HYDROCHLORIDE [Concomitant]
     Active Substance: BUPROPION HYDROCHLORIDE
     Indication: Product used for unknown indication
  5. ACYCLOVIR [Concomitant]
     Active Substance: ACYCLOVIR
     Indication: Product used for unknown indication
  6. TRULICITY [Concomitant]
     Active Substance: DULAGLUTIDE
     Indication: Product used for unknown indication
  7. HYDROCHLOROTHIAZIDE [Concomitant]
     Active Substance: HYDROCHLOROTHIAZIDE
     Indication: Product used for unknown indication
  8. ATORVASTATIN CALCIUM [Concomitant]
     Active Substance: ATORVASTATIN CALCIUM
     Indication: Product used for unknown indication
  9. ESCITALOPRAM OXALATE [Concomitant]
     Active Substance: ESCITALOPRAM OXALATE
     Indication: Product used for unknown indication
  10. VITAMIN D3 [Concomitant]
     Active Substance: CHOLECALCIFEROL
     Indication: Product used for unknown indication
  11. FENOFIBRATE [Concomitant]
     Active Substance: FENOFIBRATE
     Indication: Product used for unknown indication
  12. ASPIRIN [Concomitant]
     Active Substance: ASPIRIN
     Indication: Product used for unknown indication
  13. METFORMIN HYDROCHLORIDE [Concomitant]
     Active Substance: METFORMIN HYDROCHLORIDE
     Indication: Product used for unknown indication
  14. VALSARTAN [Concomitant]
     Active Substance: VALSARTAN
     Indication: Product used for unknown indication
  15. ALPRAZOLAM [Concomitant]
     Active Substance: ALPRAZOLAM
     Indication: Product used for unknown indication
  16. BACTERIOSTATIC WATER [Concomitant]
     Active Substance: WATER
     Indication: Product used for unknown indication

REACTIONS (15)
  - Fat tissue decreased [Unknown]
  - Injection site scar [Unknown]
  - Pain [Unknown]
  - Increased appetite [Unknown]
  - Viral infection [Unknown]
  - Bronchitis [Unknown]
  - Illness [Unknown]
  - Appetite disorder [Unknown]
  - Glycosylated haemoglobin decreased [Unknown]
  - Weight increased [Unknown]
  - Visual impairment [Unknown]
  - Headache [Unknown]
  - Hypoglycaemia [Unknown]
  - Fatigue [Unknown]
  - Weight decreased [Unknown]
